FAERS Safety Report 6759169-6 (Version None)
Quarter: 2010Q2

REPORT INFORMATION
  Report Type: 
  Country: None (occurrence: None)
  Receive Date: 20100607
  Receipt Date: 20100603
  Transmission Date: 20101027
  Serious: Yes (Hospitalization, Other)
  Sender: FDA-Public Use
  Company Number: US-ABBOTT-10P-163-0647598-00

PATIENT
  Sex: Male

DRUGS (10)
  1. HUMIRA [Suspect]
     Indication: PSORIATIC ARTHROPATHY
     Route: 058
     Dates: start: 20080201, end: 20091101
  2. HUMIRA [Suspect]
     Dates: start: 20080201, end: 20080201
  3. HUMIRA [Suspect]
     Dates: start: 20100101
  4. HUMIRA [Suspect]
     Dates: start: 20100101, end: 20100101
  5. METHOTREXATE [Concomitant]
     Indication: PSORIATIC ARTHROPATHY
     Dates: start: 20080601
  6. LISINOPRIL [Concomitant]
     Indication: HYPERTENSION
     Dosage: 20 MG DAILY
     Dates: start: 20100427
  7. LISINOPRIL [Concomitant]
     Dosage: 40 MG DAILY
     Dates: start: 20100427
  8. FOLIC ACID [Concomitant]
     Indication: VITAMIN SUPPLEMENTATION
  9. CARVEDILOL [Concomitant]
     Indication: ATRIAL FIBRILLATION
     Dosage: 6.25 MG DAILY
     Dates: start: 20100401
  10. CARVEDILOL [Concomitant]
     Dates: start: 20100427

REACTIONS (9)
  - ARTHRALGIA [None]
  - ATRIAL FIBRILLATION [None]
  - DIZZINESS [None]
  - DYSPNOEA [None]
  - EXTRASYSTOLES [None]
  - HEART RATE DECREASED [None]
  - PALPITATIONS [None]
  - PROSTATE CANCER [None]
  - PSORIASIS [None]
